FAERS Safety Report 6229984-6 (Version None)
Quarter: 2009Q2

REPORT INFORMATION
  Report Type: 
  Country: None (occurrence: None)
  Receive Date: 20090615
  Receipt Date: 20090609
  Transmission Date: 20091009
  Serious: Yes (Other)
  Sender: FDA-Public Use
  Company Number: US-AVENTIS-200915083US

PATIENT
  Age: 64 Year
  Sex: Female

DRUGS (3)
  1. APIDRA [Suspect]
     Dosage: DOSE: 1-50 (SLIDING SCALE) DEPENDING ON CARBS
     Route: 058
     Dates: start: 20060101
  2. OPTICLIK (INSULIN INJECTION PEN) [Suspect]
     Dates: start: 20060101
  3. LANTUS [Suspect]
     Route: 058
     Dates: start: 20060101

REACTIONS (2)
  - BLOOD GLUCOSE INCREASED [None]
  - ORGANISING PNEUMONIA [None]
